FAERS Safety Report 22746193 (Version 3)
Quarter: 2023Q4

REPORT INFORMATION
  Report Type: Spontaneous
  Country: US (occurrence: US)
  Receive Date: 20230725
  Receipt Date: 20231010
  Transmission Date: 20240110
  Serious: No
  Sender: FDA-Public Use
  Company Number: US-BRISTOL-MYERS SQUIBB COMPANY-2023-104245

PATIENT
  Age: 75 Year
  Sex: Male

DRUGS (1)
  1. REVLIMID [Suspect]
     Active Substance: LENALIDOMIDE
     Indication: Plasma cell myeloma
     Route: 048

REACTIONS (10)
  - Dry throat [Unknown]
  - Hypertrophy of tongue papillae [Unknown]
  - Weight decreased [Unknown]
  - Insomnia [Unknown]
  - Fatigue [Unknown]
  - Bowel movement irregularity [Unknown]
  - Constipation [Unknown]
  - Diarrhoea [Unknown]
  - Dry mouth [Unknown]
  - Ageusia [Unknown]

NARRATIVE: CASE EVENT DATE: 20230701
